FAERS Safety Report 7604830-4 (Version None)
Quarter: 2011Q3

REPORT INFORMATION
  Report Type: 
  Country: None (occurrence: None)
  Receive Date: 20110712
  Receipt Date: 20100414
  Transmission Date: 20111222
  Serious: Yes (Hospitalization)
  Sender: FDA-Public Use
  Company Number: FR-GENENTECH-321290

PATIENT
  Sex: Male
  Weight: 19 kg

DRUGS (1)
  1. NUTROPIN AQ [Suspect]
     Indication: GROWTH HORMONE DEFICIENCY
     Dosage: 0.679 MG, QD
     Route: 058
     Dates: start: 20070215

REACTIONS (1)
  - UMBILICAL HERNIA [None]
